FAERS Safety Report 6108379-X (Version None)
Quarter: 2009Q1

REPORT INFORMATION
  Report Type: 
  Country: None (occurrence: None)
  Receive Date: 20090309
  Receipt Date: 20090225
  Transmission Date: 20090719
  Serious: Yes (Disabling, Other)
  Sender: FDA-Public Use
  Company Number: HR-PFIZER INC-2009154625

PATIENT

DRUGS (5)
  1. NEURONTIN [Suspect]
     Dosage: UNIT DOSE: UNK; FREQUENCY: UNK, UNK;
     Route: 048
     Dates: start: 20081206, end: 20081201
  2. FLUVOXAMINE MALEATE [Concomitant]
     Dosage: UNK
     Route: 048
     Dates: start: 20080701
  3. CERSON [Concomitant]
     Dosage: UNK
     Route: 048
     Dates: start: 20080701
  4. NORMABEL (DIAZEPAM) [Concomitant]
  5. OXAZEPAM [Concomitant]

REACTIONS (6)
  - ABDOMINAL PAIN UPPER [None]
  - FEELING ABNORMAL [None]
  - FLUSHING [None]
  - LIP SWELLING [None]
  - PAIN IN JAW [None]
  - VERTIGO [None]
